FAERS Safety Report 5938346-8 (Version None)
Quarter: 2008Q4

REPORT INFORMATION
  Report Type: 
  Country: None (occurrence: None)
  Receive Date: 20081103
  Receipt Date: 20081026
  Transmission Date: 20090506
  Serious: Yes (Other)
  Sender: FDA-Public Use
  Company Number: AU-JNJFOC-20071107593

PATIENT
  Age: 27 Year
  Sex: Female

DRUGS (3)
  1. TOPAMAX [Suspect]
     Indication: PATERNAL DRUGS AFFECTING FOETUS
  2. TRAMADOL HCL [Suspect]
     Indication: PATERNAL DRUGS AFFECTING FOETUS
  3. FOLIC ACID [Concomitant]

REACTIONS (2)
  - BLIGHTED OVUM [None]
  - DRUG EXPOSURE DURING PREGNANCY [None]
